FAERS Safety Report 24245382 (Version 1)
Quarter: 2024Q3

REPORT INFORMATION
  Report Type: Report from Study
  Country: US (occurrence: None)
  Receive Date: 20240824
  Receipt Date: 20240824
  Transmission Date: 20241016
  Serious: Yes (Life-Threatening, Other)
  Sender: ASTRAZENECA
  Company Number: 2024A189913

PATIENT
  Sex: Female

DRUGS (1)
  1. FARXIGA [Suspect]
     Active Substance: DAPAGLIFLOZIN PROPANEDIOL
     Route: 048

REACTIONS (5)
  - Cardiac arrest [Unknown]
  - Myocardial infarction [Unknown]
  - Decreased activity [Unknown]
  - Product dose omission issue [Unknown]
  - Product use issue [Unknown]
